FAERS Safety Report 6285160-2 (Version None)
Quarter: 2009Q3

REPORT INFORMATION
  Report Type: 
  Country: None (occurrence: None)
  Receive Date: 20090727
  Receipt Date: 20090713
  Transmission Date: 20100115
  Serious: Yes (Other)
  Sender: FDA-Public Use
  Company Number: PHHY2009GB29266

PATIENT
  Sex: Male

DRUGS (1)
  1. CLOZARIL [Suspect]
     Indication: SCHIZOPHRENIA
     Dosage: UNK
     Route: 048
     Dates: start: 20011211

REACTIONS (5)
  - BRONCHOSCOPY [None]
  - HUNGER [None]
  - MALAISE [None]
  - TUBERCULOSIS [None]
  - WEIGHT INCREASED [None]
